FAERS Safety Report 9435826 (Version 1)
Quarter: 2013Q3

REPORT INFORMATION
  Report Type: Report from Study
  Country: US (occurrence: US)
  Receive Date: 20130801
  Receipt Date: 20130801
  Transmission Date: 20140515
  Serious: Yes (Other)
  Sender: FDA-Public Use
  Company Number: US-ABBOTT-13P-163-1124420-00

PATIENT
  Age: 25 Year
  Sex: Female

DRUGS (6)
  1. LUPRON DEPOT [Suspect]
     Indication: ENDOMETRIOSIS
     Dosage: MONTHLY
     Dates: start: 200503, end: 200509
  2. LUPRON DEPOT [Suspect]
     Indication: INFERTILITY
     Dates: start: 2002
  3. LUPRON DEPOT [Suspect]
     Dates: start: 20130712
  4. ZOLOFT [Concomitant]
     Indication: PRODUCT USED FOR UNKNOWN INDICATION
     Route: 048
  5. MULTIVITAMINS [Concomitant]
     Indication: PRODUCT USED FOR UNKNOWN INDICATION
     Dosage: DAILY
  6. NORETHINDRONE ACETATE [Concomitant]
     Indication: PRODUCT USED FOR UNKNOWN INDICATION
     Dosage: WITH EACH COURSE OF LUPRON
     Route: 048

REACTIONS (2)
  - Female sterilisation [Unknown]
  - Endometriosis [Not Recovered/Not Resolved]
